FAERS Safety Report 5071863-4 (Version None)
Quarter: 2006Q3

REPORT INFORMATION
  Report Type: 
  Country: None (occurrence: None)
  Receive Date: 20060801
  Receipt Date: 20060720
  Transmission Date: 20061208
  Serious: Yes (Life-Threatening)
  Sender: FDA-Public Use
  Company Number: 227733

PATIENT
  Age: 75 Year
  Sex: Male

DRUGS (4)
  1. MABTHERA (RITUXIMAB)CONC FOR SOLUTION FOR INFUSION [Suspect]
     Indication: B-CELL LYMPHOMA
     Dosage: 375 MG, INTRAVENOUS
     Route: 042
     Dates: start: 20050915, end: 20060301
  2. DOXORUBICIN HCL [Concomitant]
  3. CYCLOPHOSPHAMIDE [Concomitant]
  4. ETOPOSIDE [Concomitant]

REACTIONS (1)
  - NEUTROPENIA [None]
